FAERS Safety Report 21604880 (Version 1)
Quarter: 2022Q4

REPORT INFORMATION
  Report Type: Spontaneous
  Country: US (occurrence: None)
  Receive Date: 20221115
  Receipt Date: 20221115
  Transmission Date: 20230113
  Serious: No
  Sender: FDA-Public Use
  Company Number: None

PATIENT

DRUGS (2)
  1. STERILE WATER FOR INJECTION [Suspect]
     Active Substance: WATER
  2. DEVICE [Suspect]
     Active Substance: DEVICE

REACTIONS (3)
  - Product preparation issue [None]
  - Expired product administered [None]
  - Device delivery system issue [None]
